FAERS Safety Report 6956148-0 (Version None)
Quarter: 2010Q3

REPORT INFORMATION
  Report Type: 
  Country: None (occurrence: None)
  Receive Date: 20100830
  Receipt Date: 20100816
  Transmission Date: 20110219
  Serious: Yes (Other)
  Sender: FDA-Public Use
  Company Number: PHHY2010NO53972

PATIENT
  Sex: Male

DRUGS (3)
  1. RITALIN [Suspect]
     Dosage: MATERNAL DOSE UNKNOWN
     Route: 064
     Dates: end: 20080418
  2. CONCERTA [Suspect]
     Dosage: MATERNAL DOSE WAS 54 MG DAILY
     Route: 064
     Dates: start: 20060501, end: 20080418
  3. SELEXID [Concomitant]
     Route: 064

REACTIONS (4)
  - ARNOLD-CHIARI MALFORMATION [None]
  - DRUG EXPOSURE DURING PREGNANCY [None]
  - MENINGOMYELOCELE [None]
  - SPINA BIFIDA [None]
